FAERS Safety Report 17877920 (Version 1)
Quarter: 2020Q2

REPORT INFORMATION
  Report Type: Report from Study
  Country: CN (occurrence: CN)
  Receive Date: 20200610
  Receipt Date: 20200610
  Transmission Date: 20200714
  Serious: Yes (Other)
  Sender: FDA-Public Use
  Company Number: CN-ROCHE-2611004

PATIENT

DRUGS (1)
  1. RITUXIMAB. [Suspect]
     Active Substance: RITUXIMAB
     Indication: PEMPHIGUS
     Dosage: CONTINUOUS USE FOR 4 WEEKS
     Route: 041

REACTIONS (8)
  - Haemolytic anaemia [Recovered/Resolved]
  - Urticaria [Recovering/Resolving]
  - Intentional product use issue [Unknown]
  - Aplastic anaemia [Unknown]
  - Viral corneal ulcer [Unknown]
  - Iron deficiency anaemia [Recovered/Resolved]
  - Pneumonia [Recovering/Resolving]
  - Off label use [Unknown]
